FAERS Safety Report 16060286 (Version 2)
Quarter: 2019Q4

REPORT INFORMATION
  Report Type: Spontaneous
  Country: US (occurrence: US)
  Receive Date: 20190312
  Receipt Date: 20191127
  Transmission Date: 20200122
  Serious: Yes (Other)
  Sender: FDA-Public Use
  Company Number: US-009507513-1903USA003342

PATIENT
  Sex: Female

DRUGS (2)
  1. SINEMET CR [Suspect]
     Active Substance: CARBIDOPA\LEVODOPA
     Route: 048
  2. CARBIDOPA (+) LEVODOPA [Suspect]
     Active Substance: CARBIDOPA\LEVODOPA

REACTIONS (5)
  - Therapeutic product effect incomplete [Unknown]
  - Drug intolerance [Unknown]
  - Crohn^s disease [Unknown]
  - Feeling abnormal [Unknown]
  - Dizziness [Unknown]
